FAERS Safety Report 5272390-1 (Version None)
Quarter: 2007Q1

REPORT INFORMATION
  Report Type: 
  Country: None (occurrence: None)
  Receive Date: 20061219
  Receipt Date: 20061010
  Transmission Date: 20070707
  Serious: Yes (Hospitalization)
  Sender: FDA-Public Use
  Company Number: US-JNJFOC-20061003022

PATIENT
  Age: 21 Year
  Sex: Female
  Weight: 77.2022 kg

DRUGS (1)
  1. ORTHO EVRA [Suspect]
     Indication: AMENORRHOEA
     Dosage: TRANSDERMAL
     Route: 062
     Dates: start: 20060201, end: 20060201

REACTIONS (1)
  - PULMONARY EMBOLISM [None]
